FAERS Safety Report 8913840 (Version 1)
Quarter: 2012Q4

REPORT INFORMATION
  Report Type: 
  Country: NL (occurrence: NL)
  Receive Date: 20121116
  Receipt Date: 20121116
  Transmission Date: 20130627
  Serious: Yes (Hospitalization)
  Sender: FDA-Public Use
  Company Number: NL-BIOGENIDEC-2012BI052053

PATIENT
  Age: 57 Year
  Sex: Male

DRUGS (6)
  1. TYSABRI [Suspect]
     Indication: PRODUCT USED FOR UNKNOWN INDICATION
     Route: 042
     Dates: start: 20071029
  2. COAPROVEL  (IRBESARTAN / HYDROCHLOROTHIAZIDE) [Concomitant]
     Dates: start: 20050101
  3. MODIODAL (MODAFINIL) [Concomitant]
     Dates: start: 20090824
  4. NORMACOL (STERCULIAGOM) [Concomitant]
     Dates: start: 20080101
  5. PERINDOPRIL [Concomitant]
     Dates: start: 20100927
  6. AMLODIPINE [Concomitant]
     Dates: start: 20100927

REACTIONS (1)
  - Basal cell carcinoma [Unknown]
